FAERS Safety Report 6897059-9 (Version None)
Quarter: 2010Q3

REPORT INFORMATION
  Report Type: 
  Country: None (occurrence: None)
  Receive Date: 20100802
  Receipt Date: 20100730
  Transmission Date: 20110219
  Serious: Yes (Other)
  Sender: FDA-Public Use
  Company Number: ES-MERCK-1007ESP00005

PATIENT
  Age: 37 Year
  Sex: Female

DRUGS (3)
  1. SINGULAIR [Suspect]
     Indication: ASTHMA
     Route: 048
     Dates: start: 20100101, end: 20100329
  2. BUDESONIDE AND FORMOTEROL FUMARATE [Concomitant]
     Indication: ASTHMA
     Route: 055
  3. AMOXICILLIN [Concomitant]
     Indication: TONSILLITIS
     Route: 048
     Dates: start: 20100301, end: 20100301

REACTIONS (11)
  - ABDOMINAL PAIN [None]
  - ANXIETY [None]
  - DYSPNOEA [None]
  - HEADACHE [None]
  - MUSCLE SPASMS [None]
  - MYOCLONUS [None]
  - NAUSEA [None]
  - PARAESTHESIA [None]
  - SWELLING FACE [None]
  - TONSILLITIS [None]
  - VOMITING [None]
